FAERS Safety Report 8273575-2 (Version None)
Quarter: 2012Q2

REPORT INFORMATION
  Report Type: 
  Country: None (occurrence: None)
  Receive Date: 20120409
  Receipt Date: 20120409
  Transmission Date: 20120825
  Serious: No
  Sender: FDA-Public Use
  Company Number: None

PATIENT
  Age: 38 Year
  Sex: Female

DRUGS (1)
  1. ENBREL [Suspect]
     Indication: ANKYLOSING SPONDYLITIS
     Dosage: 50MG WEEKLY SQ
     Route: 058
     Dates: start: 20120210, end: 20120402

REACTIONS (6)
  - PRURITUS [None]
  - INJECTION SITE SWELLING [None]
  - SWELLING [None]
  - INJECTION SITE HAEMATOMA [None]
  - TOXIC EPIDERMAL NECROLYSIS [None]
  - FEELING HOT [None]
